FAERS Safety Report 25396387 (Version 1)
Quarter: 2025Q2

REPORT INFORMATION
  Report Type: Spontaneous
  Country: US (occurrence: None)
  Receive Date: 20250603
  Receipt Date: 20250603
  Transmission Date: 20250717
  Serious: Yes (unspecified)
  Sender: FDA-CTU
  Company Number: None

PATIENT
  Age: 65 Year
  Sex: Male
  Weight: 71.73 kg

DRUGS (1)
  1. REMICADE [Suspect]
     Active Substance: INFLIXIMAB
     Route: 042
     Dates: start: 20250203

REACTIONS (5)
  - Blood pressure decreased [None]
  - Infusion related reaction [None]
  - Heart rate increased [None]
  - Dizziness [None]
  - Unresponsive to stimuli [None]

NARRATIVE: CASE EVENT DATE: 20250603
